FAERS Safety Report 7422547-6 (Version None)
Quarter: 2011Q2

REPORT INFORMATION
  Report Type: 
  Country: None (occurrence: None)
  Receive Date: 20110408
  Receipt Date: 20110323
  Transmission Date: 20111010
  Serious: Yes (Other)
  Sender: FDA-Public Use
  Company Number: 2011P1005444

PATIENT
  Age: 62 Year
  Sex: Female

DRUGS (4)
  1. TEMOZOLOMIDE [Concomitant]
  2. OXCARBAZEPINE [Suspect]
     Indication: EPILEPSY
     Dosage: 1200 MG; QD; PO
     Route: 048
  3. OXCARBAZEPINE [Suspect]
     Indication: BRAIN NEOPLASM
     Dosage: 1200 MG; QD; PO
     Route: 048
  4. UNSPECIFIED STEROID [Concomitant]

REACTIONS (3)
  - CONVULSION [None]
  - ERYTHEMA MULTIFORME [None]
  - IDIOSYNCRATIC DRUG REACTION [None]
